FAERS Safety Report 20873617 (Version 1)
Quarter: 2022Q2

REPORT INFORMATION
  Report Type: Other
  Country: US (occurrence: US)
  Receive Date: 20220525
  Receipt Date: 20220525
  Transmission Date: 20220721
  Serious: Yes (Hospitalization, Other)
  Sender: FDA-Public Use
  Company Number: US-Genus_Lifesciences-USA-POI0580202200162

PATIENT
  Age: 30 Year
  Sex: Male

DRUGS (1)
  1. GOPRELTO [Suspect]
     Active Substance: COCAINE HYDROCHLORIDE
     Indication: Product used for unknown indication
     Dosage: UNKNOWN
     Route: 045
     Dates: start: 2022, end: 2022

REACTIONS (2)
  - Carotid artery dissection [Recovered/Resolved with Sequelae]
  - Coronary artery dissection [Recovered/Resolved]

NARRATIVE: CASE EVENT DATE: 20220101
